FAERS Safety Report 9833093 (Version 1)
Quarter: 2014Q1

REPORT INFORMATION
  Report Type: Spontaneous
  Country: US (occurrence: US)
  Receive Date: 20140121
  Receipt Date: 20140121
  Transmission Date: 20141002
  Serious: Yes (Hospitalization)
  Sender: FDA-Public Use
  Company Number: US-US-EMD SERONO, INC.-7263369

PATIENT
  Sex: Female
  Weight: 132 kg

DRUGS (3)
  1. REBIF [Suspect]
     Indication: MULTIPLE SCLEROSIS
     Dates: start: 2011
  2. REBIF [Suspect]
     Dates: start: 2013, end: 20130719
  3. REBIF [Suspect]
     Dates: start: 201308

REACTIONS (3)
  - Pancreatitis [Recovered/Resolved]
  - Hepatic enzyme increased [Recovered/Resolved]
  - Chills [Not Recovered/Not Resolved]
